FAERS Safety Report 7453685-X (Version None)
Quarter: 2011Q2

REPORT INFORMATION
  Report Type: 
  Country: None (occurrence: None)
  Receive Date: 20110502
  Receipt Date: 20110110
  Transmission Date: 20111010
  Serious: No
  Sender: FDA-Public Use
  Company Number: US-ASTRAZENECA-2011SE01372

PATIENT
  Age: 59 Year
  Sex: Male
  Weight: 81.6 kg

DRUGS (1)
  1. NEXIUM [Suspect]
     Dosage: TOTAL DAILY DOSE 40 MG,DOSE FREQUENCY BID
     Route: 048

REACTIONS (3)
  - DRUG DOSE OMISSION [None]
  - DIARRHOEA [None]
  - VOMITING [None]
